FAERS Safety Report 13601633 (Version 1)
Quarter: 2017Q2

REPORT INFORMATION
  Report Type: Spontaneous
  Country: GB (occurrence: GB)
  Receive Date: 20170601
  Receipt Date: 20170601
  Transmission Date: 20170830
  Serious: Yes (Other)
  Sender: FDA-Public Use
  Company Number: GB-PFIZER INC-2017238380

PATIENT
  Sex: Female

DRUGS (1)
  1. INTAL [Suspect]
     Active Substance: CROMOLYN SODIUM
     Dosage: UNK
     Route: 065

REACTIONS (3)
  - Viral upper respiratory tract infection [Unknown]
  - Drug ineffective [Unknown]
  - Lower respiratory tract infection [Unknown]
